FAERS Safety Report 25633274 (Version 2)
Quarter: 2025Q3

REPORT INFORMATION
  Report Type: Spontaneous
  Country: US (occurrence: US)
  Receive Date: 20250801
  Receipt Date: 20250905
  Transmission Date: 20251020
  Serious: No
  Sender: GLAXOSMITHKLINE
  Company Number: US-GSK-US2025084896

PATIENT
  Age: 68 Year
  Sex: Male

DRUGS (1)
  1. ANORO ELLIPTA [Suspect]
     Active Substance: UMECLIDINIUM BROMIDE\VILANTEROL TRIFENATATE
     Indication: Chronic obstructive pulmonary disease
     Dosage: 1 PUFF(S), QD
     Dates: start: 2023

REACTIONS (3)
  - Device use error [Unknown]
  - Overdose [Unknown]
  - Product complaint [Unknown]

NARRATIVE: CASE EVENT DATE: 20250705
